FAERS Safety Report 17195806 (Version 5)
Quarter: 2020Q1

REPORT INFORMATION
  Report Type: Report from Study
  Country: JP (occurrence: JP)
  Receive Date: 20191224
  Receipt Date: 20200311
  Transmission Date: 20200409
  Serious: Yes (Other)
  Sender: FDA-Public Use
  Company Number: NVSJ2019JP005601

PATIENT
  Age: 10 Year
  Sex: Female
  Weight: 41.9 kg

DRUGS (14)
  1. ILARIS [Suspect]
     Active Substance: CANAKINUMAB
     Dosage: 180 MG, UNK
     Route: 058
     Dates: start: 20190117
  2. ILARIS [Suspect]
     Active Substance: CANAKINUMAB
     Dosage: 210 MG, UNK
     Route: 058
     Dates: start: 20190423
  3. ILARIS [Suspect]
     Active Substance: CANAKINUMAB
     Indication: STILL^S DISEASE
     Dosage: 165 MG
     Route: 058
     Dates: start: 20180710
  4. ILARIS [Suspect]
     Active Substance: CANAKINUMAB
     Dosage: 180 MG
     Route: 058
     Dates: start: 20180802
  5. ILARIS [Suspect]
     Active Substance: CANAKINUMAB
     Dosage: 180 MG, UNK
     Route: 058
     Dates: start: 20180904
  6. ILARIS [Suspect]
     Active Substance: CANAKINUMAB
     Dosage: 210 MG, UNK
     Route: 058
     Dates: start: 20190319
  7. ILARIS [Suspect]
     Active Substance: CANAKINUMAB
     Dosage: 180 MG, UNK
     Route: 058
     Dates: start: 20181107
  8. ILARIS [Suspect]
     Active Substance: CANAKINUMAB
     Dosage: 180 MG, UNK
     Route: 058
     Dates: start: 20190212
  9. ILARIS [Suspect]
     Active Substance: CANAKINUMAB
     Dosage: 210 MG, UNK
     Route: 058
     Dates: start: 20190528
  10. LIDOMEX [Concomitant]
     Active Substance: PREDNISOLONE VALERATE ACETATE
     Indication: PRODUCT USED FOR UNKNOWN INDICATION
     Dosage: 10 G, UNK
     Route: 065
     Dates: start: 20180710
  11. ILARIS [Suspect]
     Active Substance: CANAKINUMAB
     Dosage: UNK
     Route: 065
  12. ILARIS [Suspect]
     Active Substance: CANAKINUMAB
     Dosage: 187.5 MG, UNK
     Route: 058
     Dates: start: 20181009
  13. ILARIS [Suspect]
     Active Substance: CANAKINUMAB
     Dosage: 180 MG, UNK
     Route: 058
     Dates: start: 20181213
  14. ILARIS [Suspect]
     Active Substance: CANAKINUMAB
     Dosage: 210 MG
     Route: 058
     Dates: start: 20190625

REACTIONS (9)
  - Rhinorrhoea [Unknown]
  - Bronchitis [Recovering/Resolving]
  - Tonsillitis bacterial [Recovered/Resolved]
  - Hypersensitivity [Unknown]
  - Upper respiratory tract inflammation [Recovering/Resolving]
  - Face injury [Recovering/Resolving]
  - Urticaria [Recovered/Resolved]
  - Proteinuria [Recovering/Resolving]
  - Swelling face [Recovered/Resolved]

NARRATIVE: CASE EVENT DATE: 20181029
